FAERS Safety Report 7289946-7 (Version None)
Quarter: 2011Q1

REPORT INFORMATION
  Report Type: 
  Country: None (occurrence: None)
  Receive Date: 20110214
  Receipt Date: 20110202
  Transmission Date: 20110831
  Serious: Yes (Other)
  Sender: FDA-Public Use
  Company Number: US-JNJFOC-20100605527

PATIENT
  Sex: Female

DRUGS (4)
  1. ADDERALL 10 [Concomitant]
  2. STELARA [Suspect]
     Indication: PSORIASIS
     Route: 058
  3. LAMICTAL [Concomitant]
     Indication: CONVULSION
  4. LEXAPRO [Concomitant]

REACTIONS (2)
  - FATIGUE [None]
  - CONVULSION [None]
